FAERS Safety Report 9618941 (Version 1)
Quarter: 2013Q4

REPORT INFORMATION
  Report Type: Spontaneous
  Country: ES (occurrence: ES)
  Receive Date: 20131014
  Receipt Date: 20131014
  Transmission Date: 20140711
  Serious: Yes (Other)
  Sender: FDA-Public Use
  Company Number: ES-MYLANLABS-2013S1022410

PATIENT
  Age: 35 Year
  Sex: Male
  Weight: 80 kg

DRUGS (4)
  1. AZATHIOPRINE [Suspect]
     Indication: CROHN^S DISEASE
     Dosage: 150MG/DAY
     Route: 065
     Dates: start: 200512
  2. CLAVERSAL [Concomitant]
     Indication: CROHN^S DISEASE
     Route: 065
     Dates: start: 200512
  3. IRON [Concomitant]
     Dosage: QUARTERLY BATCHES
     Route: 048
  4. FOLIC ACID [Concomitant]
     Dosage: TWICE/WEEK
     Route: 065

REACTIONS (1)
  - Nodular regenerative hyperplasia [Recovering/Resolving]
